FAERS Safety Report 7433588-7 (Version None)
Quarter: 2011Q2

REPORT INFORMATION
  Report Type: 
  Country: None (occurrence: None)
  Receive Date: 20110422
  Receipt Date: 20110419
  Transmission Date: 20111010
  Serious: No
  Sender: FDA-Public Use
  Company Number: US-B.I. PHARMACEUTICALS,INC./RIDGEFIELD-2011-BP-01349BP

PATIENT
  Age: 86 Year
  Sex: Female

DRUGS (6)
  1. PRADAXA [Suspect]
     Indication: ATRIAL FIBRILLATION
     Dosage: 150 MG
     Route: 048
     Dates: start: 20110107
  2. TRINATAL [Concomitant]
     Indication: PERIPHERAL VASCULAR DISORDER
  3. ASPIRIN [Concomitant]
     Dosage: 81 MG
  4. TAMOXIFEN [Concomitant]
     Indication: BREAST CANCER
     Dosage: 20 MG
  5. PENTOXIFYLINE [Concomitant]
     Dosage: 1200 MG
  6. EXELON [Concomitant]
     Dosage: 9.5 MG

REACTIONS (1)
  - HEADACHE [None]
